FAERS Safety Report 4983219-0 (Version None)
Quarter: 2006Q2

REPORT INFORMATION
  Report Type: 
  Country: None (occurrence: None)
  Receive Date: 20060419
  Receipt Date: 20060407
  Transmission Date: 20061013
  Serious: Yes (Hospitalization)
  Sender: FDA-Public Use
  Company Number: DE-2006-008142

PATIENT
  Age: 50 Year
  Sex: Male

DRUGS (3)
  1. ULTRAVIST 300 [Suspect]
     Indication: COMPUTERISED TOMOGRAM ABDOMEN
     Dosage: 1 DOSE, INTRAVENOUS
     Route: 042
     Dates: start: 20060406, end: 20060406
  2. ZITHROMAX [Concomitant]
  3. STANGYL                    (TRIMIPRAMINE MALEATE) [Concomitant]

REACTIONS (3)
  - DYSPNOEA [None]
  - OEDEMA MUCOSAL [None]
  - URTICARIA GENERALISED [None]
